FAERS Safety Report 8427429-9 (Version None)
Quarter: 2012Q2

REPORT INFORMATION
  Report Type: 
  Country: None (occurrence: None)
  Receive Date: 20120611
  Receipt Date: 20120531
  Transmission Date: 20120825
  Serious: Yes (Other)
  Sender: FDA-Public Use
  Company Number: BE-BRISTOL-MYERS SQUIBB COMPANY-16654329

PATIENT
  Sex: Female

DRUGS (1)
  1. SPRYCEL [Suspect]
     Dosage: SINCE 4 YEARS
     Dates: start: 20080101, end: 20120501

REACTIONS (1)
  - CHYLOTHORAX [None]
